FAERS Safety Report 7252502-0 (Version None)
Quarter: 2011Q1

REPORT INFORMATION
  Report Type: 
  Country: None (occurrence: None)
  Receive Date: 20110129
  Receipt Date: 20100308
  Transmission Date: 20110831
  Serious: No
  Sender: FDA-Public Use
  Company Number: US-ABBOTT-09P-163-0568374-00

PATIENT
  Sex: Female
  Weight: 48.578 kg

DRUGS (5)
  1. HUMIRA [Suspect]
     Indication: ANKYLOSING SPONDYLITIS
     Route: 058
  2. HUMIRA [Suspect]
     Indication: CROHN'S DISEASE
     Dates: start: 20070605
  3. HUMIRA [Suspect]
     Indication: ANKYLOSING SPONDYLITIS
  4. HUMIRA [Suspect]
     Indication: CROHN'S DISEASE
     Route: 058
     Dates: start: 20060410
  5. MULTIVITAMIN [Concomitant]
     Indication: PRODUCT USED FOR UNKNOWN INDICATION

REACTIONS (13)
  - ARTHRALGIA [None]
  - BACK PAIN [None]
  - RHINORRHOEA [None]
  - SKIN IRRITATION [None]
  - ROAD TRAFFIC ACCIDENT [None]
  - SINUS CONGESTION [None]
  - INJECTION SITE NODULE [None]
  - FUNGAL INFECTION [None]
  - SINUSITIS [None]
  - INJECTION SITE HAEMATOMA [None]
  - INJECTION SITE PAIN [None]
  - DYSPAREUNIA [None]
  - MASS [None]
